FAERS Safety Report 6053062-2 (Version None)
Quarter: 2009Q1

REPORT INFORMATION
  Report Type: 
  Country: None (occurrence: None)
  Receive Date: 20090127
  Receipt Date: 20081219
  Transmission Date: 20090719
  Serious: Yes (Hospitalization)
  Sender: FDA-Public Use
  Company Number: FR-PFIZER INC-2008160303

PATIENT

DRUGS (1)
  1. MARAVIROC [Suspect]
     Indication: HIV INFECTION
     Dosage: 150 MG, 2X/DAY
     Route: 048
     Dates: start: 20080122

REACTIONS (1)
  - POLYP [None]
